FAERS Safety Report 7941377-X (Version None)
Quarter: 2011Q4

REPORT INFORMATION
  Report Type: 
  Country: None (occurrence: None)
  Receive Date: 20111128
  Receipt Date: 20111123
  Transmission Date: 20120403
  Serious: No
  Sender: FDA-Public Use
  Company Number: US-PFIZER INC-2011287186

PATIENT
  Sex: Female
  Weight: 76.6 kg

DRUGS (8)
  1. METOPROLOL [Concomitant]
     Indication: CARDIAC DISORDER
     Dosage: UNK
  2. BENAZEPRIL [Concomitant]
     Indication: HYPERTENSION
     Dosage: UNK
  3. DILTIAZEM [Concomitant]
     Indication: HYPERTENSION
     Dosage: UNK
  4. CYMBALTA [Concomitant]
     Indication: BACK PAIN
     Dosage: 60 MG, UNK
  5. TRIAMTERENE AND HYDROCHLOROTHIAZIDE [Concomitant]
     Indication: HYPERTENSION
     Dosage: UNK
  6. NEURONTIN [Suspect]
     Dosage: UNK
     Route: 048
  7. LIPITOR [Concomitant]
     Indication: BLOOD CHOLESTEROL INCREASED
     Dosage: UNK
  8. NEURONTIN [Suspect]
     Indication: NEURALGIA
     Dosage: 100 MG, 3X/DAY
     Route: 048
     Dates: start: 20091101

REACTIONS (2)
  - SOMNOLENCE [None]
  - FATIGUE [None]
